FAERS Safety Report 7894365-6 (Version None)
Quarter: 2011Q4

REPORT INFORMATION
  Report Type: 
  Country: None (occurrence: None)
  Receive Date: 20111104
  Receipt Date: 20111101
  Transmission Date: 20120403
  Serious: Yes (Death, Hospitalization)
  Sender: FDA-Public Use
  Company Number: JP-ROCHE-1009258

PATIENT
  Sex: Male
  Weight: 49 kg

DRUGS (9)
  1. LEVOLEUCOVORIN CALCIUM [Concomitant]
     Indication: RECTAL CANCER METASTATIC
     Route: 041
     Dates: start: 20080527, end: 20081212
  2. TOPOTECAN [Concomitant]
     Indication: RECTAL CANCER METASTATIC
     Route: 041
     Dates: start: 20080527, end: 20081212
  3. LOPERAMIDE HCL [Concomitant]
     Indication: PROPHYLAXIS AGAINST DIARRHOEA
     Route: 048
     Dates: start: 20080527, end: 20081212
  4. GRANISETRON [Concomitant]
     Indication: PROPHYLAXIS OF NAUSEA AND VOMITING
     Route: 048
     Dates: start: 20080527, end: 20081212
  5. AVASTIN [Suspect]
     Indication: RECTAL CANCER METASTATIC
     Route: 041
     Dates: start: 20080527, end: 20080909
  6. KYTRIL [Concomitant]
     Indication: PROPHYLAXIS OF NAUSEA AND VOMITING
     Route: 048
     Dates: start: 20080527, end: 20081212
  7. DECADRON [Concomitant]
     Indication: PROPHYLAXIS OF NAUSEA AND VOMITING
     Route: 048
     Dates: start: 20080527, end: 20081212
  8. FLUOROURACIL [Concomitant]
     Indication: RECTAL CANCER METASTATIC
     Route: 040
     Dates: start: 20080527, end: 20081212
  9. FLUOROURACIL [Concomitant]
     Route: 041
     Dates: start: 20080527, end: 20081201

REACTIONS (3)
  - GASTROINTESTINAL DISORDER [None]
  - MESENTERIC VEIN THROMBOSIS [None]
  - DISEASE PROGRESSION [None]
